FAERS Safety Report 5939842-X (Version None)
Quarter: 2008Q4

REPORT INFORMATION
  Report Type: 
  Country: None (occurrence: None)
  Receive Date: 20081030
  Receipt Date: 20081030
  Transmission Date: 20090506
  Serious: No
  Sender: FDA-Public Use
  Company Number: None

PATIENT
  Sex: Female
  Weight: 55.3388 kg

DRUGS (4)
  1. NYSTATIN [Suspect]
     Indication: FUNGAL INFECTION
     Dosage: 1/8 TSP 2 TIMES DAILY ORAL
     Route: 048
  2. PRILOSEC [Concomitant]
  3. ARMOUR THYROID [Concomitant]
  4. DIFFUCAN [Concomitant]

REACTIONS (4)
  - ABDOMINAL DISTENSION [None]
  - ABDOMINAL PAIN [None]
  - DIARRHOEA [None]
  - FLATULENCE [None]
